FAERS Safety Report 9102893 (Version 1)
Quarter: 2013Q1

REPORT INFORMATION
  Report Type: Spontaneous
  Country: US (occurrence: US)
  Receive Date: 20130219
  Receipt Date: 20130219
  Transmission Date: 20140127
  Serious: Yes (Hospitalization, Other)
  Sender: FDA-Public Use
  Company Number: US-BRISTOL-MYERS SQUIBB COMPANY-17370545

PATIENT
  Age: 64 Year
  Sex: Male

DRUGS (3)
  1. ERBITUX [Suspect]
     Indication: SQUAMOUS CELL CARCINOMA
     Dosage: C1200247;OCT15
  2. METFORMIN [Concomitant]
     Dosage: 1DF=500UNITS NOT SPECIFIED
  3. AMOXICILLIN [Concomitant]
     Dosage: 1DF=500UNITS NOT SPECIFIED

REACTIONS (4)
  - Cerebrovascular accident [Unknown]
  - Pruritus [Unknown]
  - Dyspnoea [Unknown]
  - Lethargy [Unknown]
